FAERS Safety Report 20305400 (Version 1)
Quarter: 2022Q1

REPORT INFORMATION
  Report Type: Spontaneous
  Country: US (occurrence: US)
  Receive Date: 20220106
  Receipt Date: 20220106
  Transmission Date: 20220423
  Serious: No
  Sender: FDA-Public Use
  Company Number: US-BEH-2022140204

PATIENT
  Sex: Female
  Weight: 113.38 kg

DRUGS (1)
  1. PRIVIGEN [Suspect]
     Active Substance: HUMAN IMMUNOGLOBULIN G
     Indication: Multiple sclerosis
     Dosage: 50 GRAM, QMT
     Route: 042
     Dates: start: 201908

REACTIONS (3)
  - Weight fluctuation [Unknown]
  - No adverse event [Unknown]
  - Off label use [Unknown]
